FAERS Safety Report 17484218 (Version 2)
Quarter: 2020Q1

REPORT INFORMATION
  Report Type: Report from Study
  Country: GB (occurrence: GB)
  Receive Date: 20200302
  Receipt Date: 20200326
  Transmission Date: 20200409
  Serious: Yes (Hospitalization)
  Sender: FDA-Public Use
  Company Number: GB-MYLANLABS-2018M1053904

PATIENT
  Age: 26 Year
  Sex: Female

DRUGS (57)
  1. TRASTUZUMAB. [Suspect]
     Active Substance: TRASTUZUMAB
     Dosage: 450 MILLIGRAM, Q3W
     Route: 058
     Dates: start: 20150908, end: 20160831
  2. DESUNIN [Concomitant]
     Active Substance: CHOLECALCIFEROL
     Dosage: 800 INTERNATIONAL UNIT, QD
     Route: 048
     Dates: start: 20150722, end: 20150924
  3. DESUNIN [Concomitant]
     Active Substance: CHOLECALCIFEROL
     Dosage: 800 INTERNATIONAL UNIT, QD
     Route: 048
     Dates: start: 20160323
  4. NAPROXEN                           /00256202/ [Concomitant]
     Active Substance: NAPROXEN SODIUM
     Indication: SENSORY LOSS
     Dosage: UNK
  5. GABAPENTIN. [Concomitant]
     Active Substance: GABAPENTIN
     Indication: PAIN
     Dosage: 600 MILLIGRAM, QD
     Route: 048
  6. CAPECITABINE. [Suspect]
     Active Substance: CAPECITABINE
     Dosage: 3600 MILLIGRAM, QD
     Route: 048
     Dates: start: 20170719, end: 20170830
  7. ERIBULIN [Suspect]
     Active Substance: ERIBULIN
     Indication: HER-2 POSITIVE BREAST CANCER
     Dosage: 1.89 MILLIGRAM, Q3W
     Route: 042
  8. DEXAMETHASONE. [Concomitant]
     Active Substance: DEXAMETHASONE
     Indication: SENSORY LOSS
     Dosage: 500 MICROGRAM, QD
     Route: 048
  9. DEXAMETHASONE. [Concomitant]
     Active Substance: DEXAMETHASONE
     Dosage: 8 MILLIGRAM
     Route: 048
  10. MORPHINE [Concomitant]
     Active Substance: MORPHINE
     Indication: SENSORY LOSS
     Dosage: 10 MILLIGRAM
     Route: 048
     Dates: start: 20150708
  11. PARACETAMOL [Concomitant]
     Active Substance: ACETAMINOPHEN
     Indication: BACK PAIN
     Dosage: 1 GRAM
     Route: 048
     Dates: start: 20160921
  12. TINZAPARIN [Concomitant]
     Active Substance: TINZAPARIN
     Dosage: 25000 INTERNATIONAL UNIT, QD
     Route: 058
  13. COCODAMOL [Concomitant]
     Active Substance: ACETAMINOPHEN\CODEINE PHOSPHATE
     Indication: PAIN
     Dosage: 8 MILLIGRAM
     Route: 048
  14. CAPECITABINE. [Suspect]
     Active Substance: CAPECITABINE
     Indication: HER-2 POSITIVE BREAST CANCER
     Dosage: 1800 MILLIGRAM
     Route: 048
  15. DEXAMETHASONE. [Concomitant]
     Active Substance: DEXAMETHASONE
     Indication: PAIN
     Dosage: 6 MILLIGRAM, QD
     Route: 048
  16. DEXAMETHASONE. [Concomitant]
     Active Substance: DEXAMETHASONE
     Dosage: 10 MILLIGRAM, QD
     Route: 048
  17. ORAMORPH [Concomitant]
     Active Substance: MORPHINE SULFATE
     Indication: PAIN
     Dosage: 7.5 MILLIGRAM
     Route: 048
  18. NAPROXEN                           /00256202/ [Concomitant]
     Active Substance: NAPROXEN SODIUM
     Indication: PAIN
     Dosage: 750 MILLIGRAM, QD
     Route: 048
  19. AMITRIPTYLINE [Concomitant]
     Active Substance: AMITRIPTYLINE
     Indication: NEURALGIA
     Dosage: 10 MILLIGRAM
     Route: 048
  20. DICLOFENAC [Concomitant]
     Active Substance: DICLOFENAC
     Indication: PAIN
     Dosage: 1 DROP
     Route: 061
  21. IBUPROFEN. [Concomitant]
     Active Substance: IBUPROFEN
     Dosage: 2 MILLIGRAM, QD
     Route: 048
  22. LAXIDO [Concomitant]
     Active Substance: POLYETHYLENE GLYCOL 3350\POTASSIUM CHLORIDE\SODIUM BICARBONATE\SODIUM CHLORIDE
     Dosage: 7.5 MILLIGRAM
     Route: 048
     Dates: start: 20171122
  23. LETROZOLE. [Concomitant]
     Active Substance: LETROZOLE
     Indication: BREAST CANCER
     Dosage: 2.5 MILLIGRAM, QD (29/NOV/2017)
     Route: 048
     Dates: start: 20171129
  24. NAPROXEN                           /00256202/ [Concomitant]
     Active Substance: NAPROXEN SODIUM
     Indication: BACK PAIN
     Dosage: 500 MILLIGRAM, QD
     Route: 048
     Dates: start: 20161012
  25. GABAPENTIN. [Concomitant]
     Active Substance: GABAPENTIN
     Indication: SENSORY LOSS
     Dosage: 600 MILLIGRAM, QD
     Route: 048
  26. SENNA [Concomitant]
     Active Substance: SENNA LEAF\SENNOSIDES\SENNOSIDES A AND B
     Indication: CONSTIPATION
     Dosage: 7.5 MILLIGRAM, QD
     Route: 048
     Dates: start: 20171122
  27. TRASTUZUMAB. [Suspect]
     Active Substance: TRASTUZUMAB
     Dosage: 260 MILLIGRAM, Q3W
     Route: 042
     Dates: start: 20160921, end: 20170531
  28. DEXAMETHASONE. [Concomitant]
     Active Substance: DEXAMETHASONE
     Dosage: 8 MILLIGRAM
     Route: 048
     Dates: start: 20150909, end: 20150911
  29. COLECALCIFEROL [Concomitant]
     Active Substance: CHOLECALCIFEROL
     Dosage: 1.5 GRAM, QD
     Dates: start: 20171122
  30. ORAMORPH [Concomitant]
     Active Substance: MORPHINE SULFATE
     Indication: SENSORY LOSS
     Dosage: 10 MILLIGRAM
     Route: 048
     Dates: start: 20150708
  31. CYCLIZINE [Concomitant]
     Active Substance: CYCLIZINE
     Indication: NAUSEA
     Dosage: 08/FEB/2018
     Route: 048
  32. DALTEPARIN [Concomitant]
     Active Substance: DALTEPARIN
     Indication: CHEST PAIN
     Dosage: 50000 INTERNATIONAL UNIT
     Route: 058
  33. IBUPROFEN. [Concomitant]
     Active Substance: IBUPROFEN
     Indication: ANALGESIC THERAPY
     Dosage: 400 MILLIGRAM
     Route: 048
  34. METOCLOPRAMIDE. [Concomitant]
     Active Substance: METOCLOPRAMIDE
     Indication: NAUSEA
     Dosage: 10 MILLIGRAM
     Route: 042
     Dates: start: 20150818, end: 20150818
  35. GOSERELIN [Concomitant]
     Active Substance: GOSERELIN
     Dosage: 3.6 MILLIGRAM
     Route: 042
     Dates: start: 20171101
  36. TRASTUZUMAB. [Suspect]
     Active Substance: TRASTUZUMAB
     Indication: HER-2 POSITIVE BREAST CANCER
     Dosage: 600 MILLIGRAM, Q3W
     Route: 058
     Dates: start: 20170719
  37. LANSOPRAZOLE. [Concomitant]
     Active Substance: LANSOPRAZOLE
     Dosage: 30 MILLIGRAM, QD
     Route: 048
  38. DEXAMETHASONE. [Concomitant]
     Active Substance: DEXAMETHASONE
     Indication: METASTASES TO CENTRAL NERVOUS SYSTEM
     Dosage: 08 MILLIGRAM
     Route: 048
     Dates: start: 20150819, end: 20150821
  39. DEXAMETHASONE. [Concomitant]
     Active Substance: DEXAMETHASONE
     Dosage: 2 MILLIGRAM, QD
     Route: 048
  40. MORPHINE [Concomitant]
     Active Substance: MORPHINE
     Indication: PAIN
     Dosage: 20 MILLIGRAM, BID
     Route: 048
  41. ORAMORPH [Concomitant]
     Active Substance: MORPHINE SULFATE
     Indication: ANALGESIC THERAPY
     Dosage: UNK
     Route: 048
  42. LAXIDO [Concomitant]
     Active Substance: POLYETHYLENE GLYCOL 3350\POTASSIUM CHLORIDE\SODIUM BICARBONATE\SODIUM CHLORIDE
     Indication: CONSTIPATION
     Dosage: 2 DOSAGE FORM, QD
     Route: 048
  43. CAPECITABINE. [Suspect]
     Active Substance: CAPECITABINE
     Dosage: 2900 MILLIGRAM, QD
     Route: 048
     Dates: start: 20170830, end: 20171101
  44. PARACETAMOL [Concomitant]
     Active Substance: ACETAMINOPHEN
     Dosage: 4 GRAM, QD
     Route: 048
  45. LORAZEPAM. [Concomitant]
     Active Substance: LORAZEPAM
     Indication: INSOMNIA
     Dosage: 0.5 MILLIGRAM
     Route: 048
  46. ADCAL                              /07357001/ [Concomitant]
     Active Substance: CALCIUM CARBONATE
     Dosage: 1 DOSAGE FORM, QD
     Route: 048
     Dates: start: 20160202
  47. IBUPROFEN. [Concomitant]
     Active Substance: IBUPROFEN
     Dosage: 1200 MILLIGRAM, QD
     Route: 048
     Dates: start: 20150708
  48. DENOSUMAB [Concomitant]
     Active Substance: DENOSUMAB
     Dosage: 120 MILLIGRAM
     Route: 058
     Dates: start: 20160405
  49. DEXAMETHASONE. [Concomitant]
     Active Substance: DEXAMETHASONE
     Dosage: 6.6 MILLIGRAM
     Route: 042
  50. TRASTUZUMAB. [Suspect]
     Active Substance: TRASTUZUMAB
     Dosage: 600 MILLIGRAM, Q3W
     Route: 058
     Dates: start: 20150817, end: 20150817
  51. DOCETAXEL. [Suspect]
     Active Substance: DOCETAXEL
     Indication: HER-2 POSITIVE BREAST CANCER
     Dosage: 140 MILLIGRAM, Q3W
     Route: 042
     Dates: start: 20150818, end: 20151201
  52. EPIRUBICIN [Suspect]
     Active Substance: EPIRUBICIN
     Indication: HER-2 POSITIVE BREAST CANCER
     Dosage: 170 MILLIGRAM, Q3W
     Route: 042
     Dates: start: 20150724, end: 20150724
  53. PERTUZUMAB. [Suspect]
     Active Substance: PERTUZUMAB
     Indication: HER-2 POSITIVE BREAST CANCER
     Dosage: 840 MILLIGRAM, Q3W
     Route: 042
     Dates: start: 20150817, end: 20150817
  54. PERTUZUMAB. [Suspect]
     Active Substance: PERTUZUMAB
     Dosage: 420 MILLIGRAM, Q3W
     Route: 042
     Dates: start: 20150908, end: 20160831
  55. DEXAMETHASONE. [Concomitant]
     Active Substance: DEXAMETHASONE
     Dosage: 1 MILLIGRAM
     Route: 048
  56. DIAZEPAM. [Concomitant]
     Active Substance: DIAZEPAM
     Indication: SEDATION
     Dosage: 2 MILLIGRAM
     Route: 048
     Dates: start: 20150708
  57. METOCLOPRAMIDE. [Concomitant]
     Active Substance: METOCLOPRAMIDE
     Dosage: 10 MILLIGRAM
     Route: 048
     Dates: start: 20190429

REACTIONS (1)
  - Dyspnoea [Recovered/Resolved with Sequelae]

NARRATIVE: CASE EVENT DATE: 20171122
